FAERS Safety Report 20530153 (Version 1)
Quarter: 2022Q1

REPORT INFORMATION
  Report Type: Spontaneous
  Country: US (occurrence: US)
  Receive Date: 20220301
  Receipt Date: 20220301
  Transmission Date: 20220423
  Serious: No
  Sender: FDA-Public Use
  Company Number: US-BAUSCH-BL-2022-005339

PATIENT
  Age: 67 Year
  Sex: Male

DRUGS (1)
  1. LATANOPROST [Suspect]
     Active Substance: LATANOPROST
     Indication: Product used for unknown indication
     Route: 047

REACTIONS (3)
  - Instillation site erythema [Unknown]
  - Instillation site swelling [Unknown]
  - Instillation site pain [Unknown]
